FAERS Safety Report 9397463 (Version 1)
Quarter: 2013Q3

REPORT INFORMATION
  Report Type: Spontaneous
  Country: US (occurrence: US)
  Receive Date: 20130712
  Receipt Date: 20130712
  Transmission Date: 20140515
  Serious: Yes (Hospitalization)
  Sender: FDA-Public Use
  Company Number: US-B.I. PHARMACEUTICALS,INC./RIDGEFIELD-2013-BI-19791BP

PATIENT
  Age: 59 Year
  Sex: Female
  Weight: 68 kg

DRUGS (3)
  1. MICARDIS [Suspect]
     Indication: HYPERTENSION
     Dosage: 80 MG
     Route: 048
     Dates: end: 201209
  2. MICARDIS [Suspect]
     Dosage: 80 MG
     Route: 048
     Dates: start: 201210
  3. SPIRONOLACTONE [Concomitant]
     Indication: HYPERTENSION
     Dosage: 12.5 MG
     Route: 048

REACTIONS (13)
  - Skin exfoliation [Recovered/Resolved]
  - Generalised erythema [Recovered/Resolved]
  - Gastrointestinal disorder [Recovered/Resolved]
  - Gastrointestinal disorder [Recovered/Resolved]
  - Drug interaction [Recovered/Resolved]
  - Oral candidiasis [Recovered/Resolved]
  - Abnormal loss of weight [Recovered/Resolved]
  - Onychomadesis [Not Recovered/Not Resolved]
  - Onychomadesis [Not Recovered/Not Resolved]
  - Arthropod bite [Recovered/Resolved]
  - Infection [Recovered/Resolved]
  - Coeliac disease [Not Recovered/Not Resolved]
  - Abdominal pain upper [Not Recovered/Not Resolved]
